FAERS Safety Report 5641550-X (Version None)
Quarter: 2008Q1

REPORT INFORMATION
  Report Type: 
  Country: None (occurrence: None)
  Receive Date: 20080227
  Receipt Date: 20080130
  Transmission Date: 20080703
  Serious: No
  Sender: FDA-Public Use
  Company Number: A0690890A

PATIENT
  Age: 63 Year
  Sex: Female

DRUGS (4)
  1. NICORETTE [Suspect]
  2. ASCORBIC ACID [Concomitant]
  3. VITAMIN D [Concomitant]
  4. CYTOMEL [Concomitant]

REACTIONS (10)
  - ACNE [None]
  - ERYTHEMA [None]
  - EYE SWELLING [None]
  - EYELIDS PRURITUS [None]
  - NICOTINE DEPENDENCE [None]
  - PHARMACEUTICAL PRODUCT COMPLAINT [None]
  - PRURITUS [None]
  - RASH [None]
  - URINARY TRACT INFECTION [None]
  - VULVOVAGINAL PRURITUS [None]
